FAERS Safety Report 5493556-1 (Version None)
Quarter: 2007Q4

REPORT INFORMATION
  Report Type: 
  Country: None (occurrence: None)
  Receive Date: 20071023
  Receipt Date: 20071015
  Transmission Date: 20080405
  Serious: Yes (Hospitalization)
  Sender: FDA-Public Use
  Company Number: US-ELI_LILLY_AND_COMPANY-US200709003690

PATIENT
  Sex: Female
  Weight: 96.145 kg

DRUGS (8)
  1. BYETTA [Suspect]
     Indication: TYPE 2 DIABETES MELLITUS
     Dosage: 5 UG, 2/D
     Route: 058
     Dates: start: 20061101
  2. AVANDIA [Concomitant]
     Indication: DIABETES MELLITUS
     Dosage: UNK, UNKNOWN
     Dates: start: 20060301
  3. ATENOLOL [Concomitant]
     Indication: BLOOD PRESSURE
     Dosage: 50 MG, DAILY (1/D)
     Route: 048
  4. AVALIDE [Concomitant]
     Indication: BLOOD PRESSURE
     Dosage: UNK, 2/D
     Route: 048
  5. GLYBURIDE W/METFORMIN HYDROCHLORIDE [Concomitant]
     Indication: DIABETES MELLITUS
     Dosage: UNK, 2/D
     Route: 048
  6. LIPITOR [Concomitant]
     Indication: BLOOD CHOLESTEROL
     Dosage: 10 MG, DAILY (1/D)
     Route: 048
  7. LEVOTHYROXINE SODIUM [Concomitant]
     Indication: THYROID DISORDER
     Dosage: 0.1 MG, DAILY (1/D)
     Route: 048
     Dates: start: 19920101
  8. PAROXETINE [Concomitant]
     Indication: ANXIETY
     Dosage: 40 MG, DAILY (1/D)
     Route: 048
     Dates: start: 20050101

REACTIONS (12)
  - ARACHNOID CYST [None]
  - ARTHRALGIA [None]
  - CAROTID ARTERY DISEASE [None]
  - CHEST PAIN [None]
  - DIZZINESS [None]
  - EARLY SATIETY [None]
  - GAIT DISTURBANCE [None]
  - HEADACHE [None]
  - MUSCLE TIGHTNESS [None]
  - NAUSEA [None]
  - OSTEOARTHRITIS [None]
  - WEIGHT DECREASED [None]
